FAERS Safety Report 4652662-1 (Version None)
Quarter: 2005Q2

REPORT INFORMATION
  Report Type: 
  Country: None (occurrence: None)
  Receive Date: 20050502
  Receipt Date: 20050418
  Transmission Date: 20051028
  Serious: Yes (Other)
  Sender: FDA-Public Use
  Company Number: 2005063067

PATIENT
  Sex: Female

DRUGS (3)
  1. ZARONTIN SYRUP [Suspect]
     Indication: EPILEPSY
     Dosage: ORAL
     Route: 048
  2. TOPIRAMATE [Concomitant]
  3. VALPROATE SODIUM [Concomitant]

REACTIONS (4)
  - CONVULSION [None]
  - NAUSEA [None]
  - PHARMACEUTICAL PRODUCT COMPLAINT [None]
  - VOMITING [None]
